FAERS Safety Report 15577484 (Version 5)
Quarter: 2020Q1

REPORT INFORMATION
  Report Type: Spontaneous
  Country: US (occurrence: US)
  Receive Date: 20181102
  Receipt Date: 20200213
  Transmission Date: 20200409
  Serious: Yes (Other)
  Sender: FDA-Public Use
  Company Number: US-BRISTOL-MYERS SQUIBB COMPANY-BMS-2018-100302

PATIENT
  Age: 62 Year
  Sex: Female

DRUGS (1)
  1. SPRYCEL [Suspect]
     Active Substance: DASATINIB
     Indication: CHRONIC MYELOID LEUKAEMIA
     Dosage: 100 MILLIGRAM, QD
     Route: 048
     Dates: start: 20160404

REACTIONS (8)
  - Eye swelling [Unknown]
  - Immunodeficiency [Unknown]
  - Nausea [Unknown]
  - Erythema [Unknown]
  - Skin irritation [Unknown]
  - Periorbital swelling [Unknown]
  - Uterine disorder [Unknown]
  - Lymphadenopathy [Unknown]

NARRATIVE: CASE EVENT DATE: 202001
